FAERS Safety Report 6153903-4 (Version None)
Quarter: 2009Q2

REPORT INFORMATION
  Report Type: 
  Country: None (occurrence: None)
  Receive Date: 20090414
  Receipt Date: 20090406
  Transmission Date: 20091009
  Serious: Yes (Hospitalization)
  Sender: FDA-Public Use
  Company Number: US-ROXANE LABORATORIES, INC.-2009-RO-00344RO

PATIENT
  Age: 67 Year
  Sex: Male

DRUGS (9)
  1. MORPHINE [Suspect]
  2. CODEINE [Suspect]
  3. ASPIRIN [Suspect]
  4. ATORVASTATIN [Suspect]
  5. CYANOCOBALAMIN [Suspect]
  6. MULTI-VITAMINS [Suspect]
  7. VANCOMYCIN HCL [Suspect]
     Indication: CELLULITIS STAPHYLOCOCCAL
     Route: 042
  8. OXYGEN [Suspect]
     Indication: RESPIRATORY DEPRESSION
  9. NALOXONE [Suspect]
     Route: 042

REACTIONS (14)
  - ATRIAL FIBRILLATION [None]
  - BACTERIAL TRACHEITIS [None]
  - CAPILLARY DISORDER [None]
  - DRUG DISPENSING ERROR [None]
  - DRY SKIN [None]
  - MENTAL STATUS CHANGES [None]
  - OVERDOSE [None]
  - PERIPHERAL COLDNESS [None]
  - PNEUMONIA [None]
  - PNEUMOTHORAX [None]
  - RESPIRATORY DEPRESSION [None]
  - RHONCHI [None]
  - SKIN DISCOLOURATION [None]
  - TACHYCARDIA [None]
